FAERS Safety Report 9590975 (Version 1)
Quarter: 2013Q4

REPORT INFORMATION
  Report Type: Spontaneous
  Country: US (occurrence: US)
  Receive Date: 20131003
  Receipt Date: 20131003
  Transmission Date: 20140711
  Serious: No
  Sender: FDA-Public Use
  Company Number: US-AMGEN-USASP2012080173

PATIENT
  Sex: Female
  Weight: 56.69 kg

DRUGS (3)
  1. ENBREL [Suspect]
     Indication: PSORIASIS
     Dosage: 50 MG, 2 TIMES/WK
     Route: 058
  2. MULTIVITAMIN                       /07504101/ [Concomitant]
     Dosage: UNK
  3. MIRCETTE [Concomitant]
     Dosage: 28 DAY

REACTIONS (1)
  - Therapeutic response decreased [Unknown]
